FAERS Safety Report 10175148 (Version 2)
Quarter: 2014Q2

REPORT INFORMATION
  Report Type: Report from Study
  Country: NL (occurrence: NL)
  Receive Date: 20140515
  Receipt Date: 20140515
  Transmission Date: 20141212
  Serious: Yes (Death)
  Sender: FDA-Public Use
  Company Number: NL-ABBVIE-13P-114-1174734-00

PATIENT
  Age: 69 Year
  Sex: Male
  Weight: 98 kg

DRUGS (6)
  1. LUCRIN [Suspect]
     Indication: PROSTATE CANCER
     Route: 058
     Dates: start: 20130526
  2. ASASANTIN [Concomitant]
     Indication: CEREBROVASCULAR ACCIDENT
     Route: 048
     Dates: start: 2001
  3. NIFEDIPINE [Concomitant]
     Indication: ANGINA PECTORIS
     Route: 048
  4. LOSARTAN KALIUM CF [Concomitant]
     Indication: PRODUCT USED FOR UNKNOWN INDICATION
     Dosage: 50/12.5MG
     Route: 048
  5. BICALUTAMIDE [Concomitant]
     Indication: PROSTATE CANCER
     Route: 048
     Dates: start: 201205
  6. SIMVASTATIN [Concomitant]
     Indication: HYPERCHOLESTEROLAEMIA
     Route: 048

REACTIONS (6)
  - Death [Fatal]
  - Abdominal distension [Not Recovered/Not Resolved]
  - Gynaecomastia [Not Recovered/Not Resolved]
  - Dysgeusia [Not Recovered/Not Resolved]
  - Insomnia [Not Recovered/Not Resolved]
  - Nocturia [Not Recovered/Not Resolved]
